FAERS Safety Report 9382708 (Version 1)
Quarter: 2013Q3

REPORT INFORMATION
  Report Type: Spontaneous
  Country: US (occurrence: US)
  Receive Date: 20130703
  Receipt Date: 20130703
  Transmission Date: 20140515
  Serious: No
  Sender: FDA-Public Use
  Company Number: US-UPSHER-SMITH LABORATORIES, INC.-13000146

PATIENT
  Age: 56 Year
  Sex: Female
  Weight: 54 kg

DRUGS (10)
  1. DIVIGEL [Suspect]
     Indication: NIGHT SWEATS
     Dosage: 1 MG, QD
     Route: 061
     Dates: start: 2010
  2. VITAMIN B12                        /00056201/ [Concomitant]
     Dosage: 2500 MCG, QD
     Route: 060
  3. CALCITONIN [Concomitant]
     Dosage: UNK
  4. CALCIUM [Concomitant]
     Dosage: 1800 MG, QD
  5. AMLODIPINE BESYLATE [Concomitant]
     Dosage: UNK
  6. BENAZEPRIL HCL [Concomitant]
     Dosage: UNK
  7. HYDROCHLOROTHIAZIDE [Concomitant]
     Dosage: UNK
  8. KLOR-CON [Concomitant]
     Dosage: UNK
  9. TESTOSTERONE [Concomitant]
     Dosage: VARIABLE DOSE, Q 6-10 WEEKS
  10. ATENOLOL [Concomitant]
     Dosage: UNK

REACTIONS (2)
  - Dermatitis [Not Recovered/Not Resolved]
  - Application site pain [Recovering/Resolving]
